FAERS Safety Report 10949107 (Version 1)
Quarter: 2015Q1

REPORT INFORMATION
  Report Type: Spontaneous
  Country: US (occurrence: None)
  Receive Date: 20150323
  Receipt Date: 20150323
  Transmission Date: 20150721
  Serious: Yes (Hospitalization)
  Sender: FDA-Public Use
  Company Number: None

PATIENT
  Age: 65 Year
  Sex: Male
  Weight: 85 kg

DRUGS (8)
  1. TRIAMCINOLONE ACETONIDE OINTMENT [Concomitant]
  2. HYDROCHLOROTHIAZIDE. [Concomitant]
     Active Substance: HYDROCHLOROTHIAZIDE
  3. ASPIRIN. [Concomitant]
     Active Substance: ASPIRIN
  4. ATORVASTATIN [Concomitant]
     Active Substance: ATORVASTATIN
  5. LOSARTAN [Concomitant]
     Active Substance: LOSARTAN
  6. IPILIMUMAB [Suspect]
     Active Substance: IPILIMUMAB
     Indication: METASTATIC MALIGNANT MELANOMA
     Dosage: (250 MG ACTUAL DOSE GEVEN) EVERY 21 DAYS
     Route: 042
     Dates: start: 20150206, end: 20150227
  7. NORVASC [Concomitant]
     Active Substance: AMLODIPINE BESYLATE
  8. NAPROXEN. [Concomitant]
     Active Substance: NAPROXEN

REACTIONS (9)
  - Diarrhoea [None]
  - Hyponatraemia [None]
  - Abdominal pain [None]
  - Fatigue [None]
  - Nausea [None]
  - Dehydration [None]
  - Vomiting [None]
  - Dizziness [None]
  - Enteritis [None]

NARRATIVE: CASE EVENT DATE: 20150316
